FAERS Safety Report 24735296 (Version 1)
Quarter: 2024Q4

REPORT INFORMATION
  Report Type: Spontaneous
  Country: US (occurrence: US)
  Receive Date: 20241215
  Receipt Date: 20241215
  Transmission Date: 20250115
  Serious: No
  Sender: SUNOVION
  Company Number: US-SMPA-2024SPA005554AA

PATIENT

DRUGS (1)
  1. ORGOVYX [Suspect]
     Active Substance: RELUGOLIX
     Indication: Androgen therapy
     Dosage: 120 MG, QD
     Route: 065

REACTIONS (3)
  - Urethral discharge [Unknown]
  - Rash [Unknown]
  - Off label use [Unknown]
